FAERS Safety Report 14062869 (Version 1)
Quarter: 2017Q4

REPORT INFORMATION
  Report Type: Spontaneous
  Country: US (occurrence: US)
  Receive Date: 20171009
  Receipt Date: 20171009
  Transmission Date: 20180321
  Serious: No
  Sender: FDA-Public Use
  Company Number: US-JNJFOC-20170810044

PATIENT
  Age: 50 Year
  Sex: Female
  Weight: 70.31 kg

DRUGS (2)
  1. VISINE [Suspect]
     Active Substance: TETRAHYDROZOLINE HYDROCHLORIDE
     Indication: OCULAR HYPERAEMIA
     Route: 047
  2. VISINE [Suspect]
     Active Substance: TETRAHYDROZOLINE HYDROCHLORIDE
     Indication: EYE SWELLING
     Route: 047

REACTIONS (1)
  - Product use in unapproved indication [Unknown]
